FAERS Safety Report 7825902-5 (Version None)
Quarter: 2011Q4

REPORT INFORMATION
  Report Type: 
  Country: None (occurrence: None)
  Receive Date: 20111019
  Receipt Date: 20111006
  Transmission Date: 20120403
  Serious: Yes (Life-Threatening)
  Sender: FDA-Public Use
  Company Number: CA-ROCHE-709726

PATIENT
  Sex: Male
  Weight: 112.3 kg

DRUGS (6)
  1. COPEGUS [Suspect]
     Indication: HEPATITIS C
     Dosage: 600 MG IN MORNING AND 400 MG IN EVENING.LAST DOSE PRIOR TO SAE: 12 JUN 2010
     Route: 048
  2. AMERGE [Concomitant]
     Dosage: TDD: PRN
  3. OMEPRAZOLE [Concomitant]
  4. PEG-INTERFERON ALFA 2A [Suspect]
     Indication: HEPATITIS C
     Dosage: DOSE: 180 UG/ML. FORM: LIQUID. LAST DOSE PRIOR TO SAE: 09 JUN 2010.
     Route: 058
  5. MULTI-VITAMIN [Concomitant]
     Dosage: TDD: 1 PILL DRUG: MULTIVITAMINS
  6. BLINDED RO 5024048 (HCV POLYMERASE INHIBITOR) [Suspect]
     Indication: HEPATITIS C
     Dosage: LAST DOSE PRIOR TO SAE: 12 JUN 2010
     Route: 048

REACTIONS (1)
  - PULMONARY EMBOLISM [None]
